FAERS Safety Report 14797286 (Version 6)
Quarter: 2018Q3

REPORT INFORMATION
  Report Type: Report from Study
  Country: TW (occurrence: TW)
  Receive Date: 20180424
  Receipt Date: 20180904
  Transmission Date: 20181010
  Serious: Yes (Life-Threatening, Hospitalization)
  Sender: FDA-Public Use
  Company Number: TW-AMGEN-TWNCT2018054305

PATIENT
  Age: 73 Year
  Sex: Female
  Weight: 60 kg

DRUGS (13)
  1. DEPYRETIN [Concomitant]
     Active Substance: ACETAMINOPHEN
     Dosage: 500 MG, UNK
     Dates: start: 20180221, end: 20180222
  2. DIOVAN [Concomitant]
     Active Substance: VALSARTAN
     Dosage: 80 MG, UNK
     Dates: start: 20180206
  3. CHLORPHENIRAMINE. [Concomitant]
     Active Substance: CHLORPHENIRAMINE
     Dosage: 5 MG, UNK
     Dates: start: 20180201, end: 20180503
  4. NORVASC [Concomitant]
     Active Substance: AMLODIPINE BESYLATE
     Dosage: 5 MG, UNK
     Dates: start: 20180213
  5. BONEFOS [Concomitant]
     Active Substance: CLODRONATE DISODIUM
     Dosage: 400 MG, UNK
     Dates: start: 20180123, end: 20180206
  6. CONCOR [Concomitant]
     Active Substance: BISOPROLOL FUMARATE
     Dosage: 1.25 MG, UNK
     Dates: start: 20180206, end: 20180213
  7. NORMAL SALINE [Concomitant]
     Active Substance: SODIUM CHLORIDE
     Dosage: 250 ML, UNK
     Route: 042
     Dates: start: 20180206
  8. METHASONE [Concomitant]
     Dosage: 5 MG, UNK
     Dates: start: 20180201, end: 20180410
  9. DEXAMETHASONE. [Concomitant]
     Active Substance: DEXAMETHASONE
     Indication: PLASMA CELL MYELOMA
     Dosage: 20 MG, UNK
     Route: 048
     Dates: start: 20180206
  10. LASIX [Concomitant]
     Active Substance: FUROSEMIDE
     Dosage: 20 MG, UNK
     Dates: start: 20180201, end: 20180410
  11. CARFILZOMIB [Suspect]
     Active Substance: CARFILZOMIB
     Indication: PLASMA CELL MYELOMA
     Dosage: 90 MG, PER CHEMO REGIM
     Route: 042
     Dates: start: 20180206, end: 20180423
  12. FUROSEMIDE. [Concomitant]
     Active Substance: FUROSEMIDE
     Dosage: 20 MG, UNK
     Dates: start: 20180213, end: 20180504
  13. CHLORPHENAMINE [Concomitant]
     Active Substance: CHLORPHENIRAMINE MALEATE
     Dosage: 5 MG, UNK
     Dates: start: 20180201, end: 20180410

REACTIONS (2)
  - Plasma cell myeloma [Not Recovered/Not Resolved]
  - Thrombocytopenia [Not Recovered/Not Resolved]

NARRATIVE: CASE EVENT DATE: 20180420
